FAERS Safety Report 20963256 (Version 1)
Quarter: 2022Q2

REPORT INFORMATION
  Report Type: Report from Study
  Country: US (occurrence: US)
  Receive Date: 20220615
  Receipt Date: 20220615
  Transmission Date: 20220721
  Serious: Yes (Life-Threatening, Hospitalization, Other)
  Sender: FDA-Public Use
  Company Number: US-AMGEN-USACT2022099842

PATIENT
  Age: 65 Year
  Sex: Male
  Weight: 90.3 kg

DRUGS (5)
  1. BLINATUMOMAB [Suspect]
     Active Substance: BLINATUMOMAB
     Indication: Acute lymphocytic leukaemia
     Dosage: TOTAL DOSE ADMINISTERED: 196 MCG
     Route: 065
     Dates: end: 20220117
  2. BLINATUMOMAB [Suspect]
     Active Substance: BLINATUMOMAB
     Dosage: 9 MICROGRAM, QD (DOSE REDUCED)
     Route: 065
     Dates: start: 20220124
  3. SPRYCEL [Suspect]
     Active Substance: DASATINIB
     Indication: Acute lymphocytic leukaemia
     Dosage: TOTAL DOSE ADMINISTERED: 700 MG
     Route: 065
     Dates: end: 20220120
  4. SPRYCEL [Suspect]
     Active Substance: DASATINIB
     Dosage: UNK (RESUMED)
     Route: 065
     Dates: start: 20220125
  5. DEXAMETHASONE [Suspect]
     Active Substance: DEXAMETHASONE
     Indication: Acute lymphocytic leukaemia
     Dosage: TOTAL DOSE ADMINISTERED: 20 MILLIGRAM
     Route: 065

REACTIONS (4)
  - Hypertension [Recovered/Resolved]
  - Neutrophil count decreased [Recovering/Resolving]
  - Febrile neutropenia [Recovered/Resolved]
  - White blood cell count decreased [Recovered/Resolved]

NARRATIVE: CASE EVENT DATE: 20220117
